FAERS Safety Report 12205979 (Version 7)
Quarter: 2017Q3

REPORT INFORMATION
  Report Type: Spontaneous
  Country: US (occurrence: US)
  Receive Date: 20160323
  Receipt Date: 20170720
  Transmission Date: 20171127
  Serious: Yes (Other)
  Sender: FDA-Public Use
  Company Number: US-BIOMARINAP-US-2015-108621

PATIENT
  Sex: Male

DRUGS (2)
  1. ALDURAZYME [Suspect]
     Active Substance: LARONIDASE
     Dosage: 11.6 MG, QW
     Route: 041
     Dates: start: 20160401
  2. ALDURAZYME [Suspect]
     Active Substance: LARONIDASE
     Indication: MUCOPOLYSACCHARIDOSIS I
     Dosage: 11.6 MG, UNK
     Route: 041
     Dates: start: 20130916

REACTIONS (16)
  - Pyrexia [Recovering/Resolving]
  - Hypoacusis [Unknown]
  - Abscess [Recovering/Resolving]
  - Viral infection [Unknown]
  - Henoch-Schonlein purpura [Recovering/Resolving]
  - Pneumonia [Recovered/Resolved]
  - Pyrexia [Recovered/Resolved]
  - Middle ear effusion [Recovered/Resolved]
  - Device related infection [Recovering/Resolving]
  - Tympanic membrane disorder [Unknown]
  - Ear infection [Recovered/Resolved]
  - Cellulitis [Recovering/Resolving]
  - Sleep apnoea syndrome [Recovered/Resolved]
  - Ear disorder [Unknown]
  - Dehydration [Recovered/Resolved]
  - Malaise [Unknown]
